FAERS Safety Report 4732032-8 (Version None)
Quarter: 2005Q3

REPORT INFORMATION
  Report Type: 
  Country: None (occurrence: None)
  Receive Date: 20050722
  Receipt Date: 20050412
  Transmission Date: 20060218
  Serious: Yes (Other)
  Sender: FDA-Public Use
  Company Number: 05-000264

PATIENT
  Age: 53 Year
  Sex: Female

DRUGS (4)
  1. FEMHRT [Suspect]
     Indication: MENOPAUSAL SYMPTOMS
     Dosage: 1/5
  2. OGEN [Suspect]
     Indication: MENOPAUSAL SYMPTOMS
     Dosage: 1.25 MG
     Dates: start: 19970103, end: 19970526
  3. AYGESTIN [Suspect]
     Indication: MENOPAUSAL SYMPTOMS
     Dosage: 5 MG
     Dates: start: 19970228, end: 20000818
  4. ESTROPIPATE [Suspect]
     Indication: MENOPAUSAL SYMPTOMS
     Dosage: 1.2 MG
     Dates: start: 19980101

REACTIONS (2)
  - BREAST CANCER [None]
  - HERPES ZOSTER [None]
